FAERS Safety Report 7865352-9 (Version None)
Quarter: 2011Q4

REPORT INFORMATION
  Report Type: 
  Country: None (occurrence: None)
  Receive Date: 20111028
  Receipt Date: 20101201
  Transmission Date: 20120403
  Serious: No
  Sender: FDA-Public Use
  Company Number: US-GLAXOSMITHKLINE-A0897213A

PATIENT
  Age: 80 Year
  Sex: Male

DRUGS (7)
  1. TENORETIC 100 [Concomitant]
  2. ADVAIR DISKUS 100/50 [Suspect]
     Indication: DYSPNOEA
     Dosage: 1PUFF TWICE PER DAY
     Route: 055
     Dates: start: 20101130
  3. ZOCOR [Concomitant]
  4. HYTRIN [Concomitant]
  5. SYNTHROID [Concomitant]
  6. PREDNISONE [Suspect]
     Indication: NASOPHARYNGITIS
     Dosage: 10MG SEE DOSAGE TEXT
     Route: 048
     Dates: start: 20110128
  7. ZESTRIL [Concomitant]

REACTIONS (4)
  - RETCHING [None]
  - DRUG INEFFECTIVE [None]
  - COUGH [None]
  - DYSGEUSIA [None]
